FAERS Safety Report 7065699-2 (Version None)
Quarter: 2010Q4

REPORT INFORMATION
  Report Type: 
  Country: None (occurrence: None)
  Receive Date: 20101027
  Receipt Date: 20101015
  Transmission Date: 20110411
  Serious: Yes (Hospitalization, Other)
  Sender: FDA-Public Use
  Company Number: US-CELGENEUS-163-21880-10101839

PATIENT
  Sex: Female

DRUGS (1)
  1. REVLIMID [Suspect]
     Route: 048
     Dates: start: 20100823

REACTIONS (7)
  - ANAEMIA [None]
  - CONTUSION [None]
  - HAEMOPTYSIS [None]
  - NIGHT SWEATS [None]
  - ORAL DISORDER [None]
  - PLATELET COUNT DECREASED [None]
  - RASH [None]
